FAERS Safety Report 19065074 (Version 4)
Quarter: 2021Q2

REPORT INFORMATION
  Report Type: Spontaneous
  Country: CA (occurrence: CA)
  Receive Date: 20210326
  Receipt Date: 20210619
  Transmission Date: 20210717
  Serious: Yes (Hospitalization, Disabling)
  Sender: FDA-Public Use
  Company Number: CA-CELLTRION INC.-2021CA003995

PATIENT

DRUGS (4)
  1. INFLECTRA [Suspect]
     Active Substance: INFLIXIMAB-DYYB
     Dosage: 10 MG/KG (WEEK 2 DOSE DOSE ? 10 MG/KG OR 1100 MG)
     Route: 042
     Dates: start: 20210112, end: 20210112
  2. INFLECTRA [Suspect]
     Active Substance: INFLIXIMAB-DYYB
     Indication: COLITIS ULCERATIVE
     Dosage: 10 MG/KG (WEEK 0 DOSE IN HOSPITAL)
     Route: 042
     Dates: start: 20201227, end: 20201227
  3. INFLECTRA [Suspect]
     Active Substance: INFLIXIMAB-DYYB
     Dosage: 10 MG/KG (WEEK 6 DOSE DOSE ? 10 MG/KG OR 1100 MG)
     Route: 042
     Dates: start: 20210209, end: 20210209
  4. PREDNISONE. [Concomitant]
     Active Substance: PREDNISONE
     Dosage: 1 DF (DOSAGE INFO UNK)
     Route: 065

REACTIONS (6)
  - Off label use [Unknown]
  - Dyspnoea [Unknown]
  - Pneumocystis jirovecii pneumonia [Unknown]
  - Chest discomfort [Unknown]
  - Pain [Unknown]
  - Infection [Unknown]

NARRATIVE: CASE EVENT DATE: 20201227
